FAERS Safety Report 10337528 (Version 1)
Quarter: 2014Q3

REPORT INFORMATION
  Report Type: Spontaneous
  Country: US (occurrence: US)
  Receive Date: 20140724
  Receipt Date: 20140724
  Transmission Date: 20150326
  Serious: No
  Sender: FDA-Public Use
  Company Number: US-UNITED THERAPEUTICS-UTC-046962

PATIENT
  Sex: Female

DRUGS (2)
  1. ADCIRCA [Concomitant]
     Active Substance: TADALAFIL
  2. TYVASO [Suspect]
     Active Substance: TREPROSTINIL
     Dates: start: 20130501

REACTIONS (5)
  - Oxygen consumption increased [Unknown]
  - Swelling [Unknown]
  - Weight increased [Unknown]
  - Epistaxis [Unknown]
  - Dyspnoea [Unknown]

NARRATIVE: CASE EVENT DATE: 2013
